FAERS Safety Report 17851297 (Version 1)
Quarter: 2020Q2

REPORT INFORMATION
  Report Type: Spontaneous
  Country: AU (occurrence: AU)
  Receive Date: 20200602
  Receipt Date: 20200602
  Transmission Date: 20200714
  Serious: Yes (Hospitalization, Other)
  Sender: FDA-Public Use
  Company Number: AU-TASMAN PHARMA, INC.-2020TSM00242

PATIENT
  Sex: Female
  Weight: 57 kg

DRUGS (6)
  1. CLOZAPINE. [Suspect]
     Active Substance: CLOZAPINE
     Dosage: 700 MG
     Dates: start: 20180502, end: 20181006
  2. CLOZAPINE. [Suspect]
     Active Substance: CLOZAPINE
     Dosage: 400 MG
     Dates: start: 20191028, end: 20191122
  3. CLOZAPINE. [Suspect]
     Active Substance: CLOZAPINE
     Dosage: 700 MG
     Dates: start: 20181009, end: 20191027
  4. CLOZAPINE. [Suspect]
     Active Substance: CLOZAPINE
     Dosage: 200 MG
     Dates: start: 20180222, end: 20180321
  5. CLOZAPINE. [Suspect]
     Active Substance: CLOZAPINE
     Dosage: 700 MG
     Dates: start: 20180322, end: 20180501
  6. CLOZAPINE. [Suspect]
     Active Substance: CLOZAPINE
     Dosage: 100 MG
     Dates: start: 20180215, end: 20180221

REACTIONS (4)
  - Product dose omission [Recovered/Resolved]
  - Treatment noncompliance [Recovered/Resolved]
  - Fracture [Unknown]
  - Mental disorder [Unknown]

NARRATIVE: CASE EVENT DATE: 20181007
